FAERS Safety Report 17330097 (Version 1)
Quarter: 2020Q1

REPORT INFORMATION
  Report Type: Spontaneous
  Country: PT (occurrence: PT)
  Receive Date: 20200128
  Receipt Date: 20200128
  Transmission Date: 20200409
  Serious: Yes (Hospitalization, Other)
  Sender: FDA-Public Use
  Company Number: PT-MYLANLABS-2020M1009699

PATIENT
  Age: 69 Year
  Sex: Male

DRUGS (2)
  1. RISPERIDONE. [Suspect]
     Active Substance: RISPERIDONE
     Indication: PRODUCT USED FOR UNKNOWN INDICATION
     Dosage: 1.5 MILLIGRAM, QD
  2. RISPERIDONE. [Suspect]
     Active Substance: RISPERIDONE
     Dosage: 1.75 MILLIGRAM, QD

REACTIONS (1)
  - Encephalopathy [Recovering/Resolving]
